FAERS Safety Report 24914781 (Version 1)
Quarter: 2025Q1

REPORT INFORMATION
  Report Type: Spontaneous
  Country: US (occurrence: US)
  Receive Date: 20250203
  Receipt Date: 20250203
  Transmission Date: 20250409
  Serious: No
  Sender: ABBVIE
  Company Number: US-ABBVIE-6106033

PATIENT
  Sex: Female

DRUGS (1)
  1. UPADACITINIB [Suspect]
     Active Substance: UPADACITINIB
     Indication: Skin disorder
     Route: 048

REACTIONS (4)
  - Ear congestion [Unknown]
  - Influenza like illness [Unknown]
  - Cough [Unknown]
  - Malaise [Unknown]
